FAERS Safety Report 8315424-X (Version None)
Quarter: 2012Q2

REPORT INFORMATION
  Report Type: 
  Country: None (occurrence: None)
  Receive Date: 20120426
  Receipt Date: 20120419
  Transmission Date: 20120825
  Serious: Yes (Death, Life-Threatening, Hospitalization)
  Sender: FDA-Public Use
  Company Number: US-ACTELION-A-US2012-59290

PATIENT

DRUGS (5)
  1. OXYGEN [Concomitant]
  2. TRACLEER [Suspect]
     Indication: PULMONARY ARTERIAL HYPERTENSION
     Dosage: UNK
     Route: 048
     Dates: start: 20111205, end: 20120414
  3. ISOSORBIDE DINITRATE [Concomitant]
  4. CALCIUM CHANNEL BLOCKERS [Concomitant]
  5. COUMADIN [Concomitant]

REACTIONS (7)
  - OEDEMA PERIPHERAL [None]
  - RENAL DISORDER [None]
  - PULMONARY ARTERIAL HYPERTENSION [None]
  - DEATH [None]
  - CARDIAC DISORDER [None]
  - DYSPNOEA [None]
  - WEIGHT INCREASED [None]
